FAERS Safety Report 7161730-4 (Version None)
Quarter: 2010Q4

REPORT INFORMATION
  Report Type: 
  Country: None (occurrence: None)
  Receive Date: 20101215
  Receipt Date: 20101202
  Transmission Date: 20110411
  Serious: Yes (Other)
  Sender: FDA-Public Use
  Company Number: DE-ELI_LILLY_AND_COMPANY-DE201012001205

PATIENT
  Age: 60 Year
  Sex: Male

DRUGS (8)
  1. CYMBALTA [Suspect]
     Indication: PAIN
     Dosage: 30 MG, UNK
     Route: 048
     Dates: start: 20101122
  2. CYMBALTA [Suspect]
     Dosage: 60 MG, UNK
     Route: 048
     Dates: start: 20101122
  3. VANCOMYCIN [Concomitant]
  4. MEROPENEM [Concomitant]
  5. TYGACIL [Concomitant]
  6. LYRICA [Concomitant]
  7. HYDROMORPHONE [Concomitant]
  8. ARCOXIA [Concomitant]

REACTIONS (3)
  - BLOOD ALKALINE PHOSPHATASE INCREASED [None]
  - BLOOD BILIRUBIN ABNORMAL [None]
  - GAMMA-GLUTAMYLTRANSFERASE INCREASED [None]
